FAERS Safety Report 6670755-4 (Version None)
Quarter: 2010Q2

REPORT INFORMATION
  Report Type: 
  Country: None (occurrence: None)
  Receive Date: 20100407
  Receipt Date: 20100329
  Transmission Date: 20101027
  Serious: Yes (Other)
  Sender: FDA-Public Use
  Company Number: PHEH2010US03171

PATIENT
  Sex: Female

DRUGS (1)
  1. TRILEPTAL [Suspect]
     Dosage: 6 ML AT 9 AM AND 7ML AT 9 PM
     Route: 048
     Dates: start: 20080801

REACTIONS (3)
  - ABDOMINAL PAIN [None]
  - GASTROENTERITIS [None]
  - PYREXIA [None]
